FAERS Safety Report 9295505 (Version 1)
Quarter: 2013Q2

REPORT INFORMATION
  Report Type: Spontaneous
  Country: US (occurrence: US)
  Receive Date: 20130517
  Receipt Date: 20130517
  Transmission Date: 20140414
  Serious: No
  Sender: FDA-Public Use
  Company Number: US-BANPHARM-20120363

PATIENT
  Age: 8 Year
  Sex: Female

DRUGS (1)
  1. IBUPROFEN CAPSULES 200 MG [Suspect]
     Indication: INFLUENZA LIKE ILLNESS
     Dosage: ONE BITE,
     Route: 048

REACTIONS (3)
  - Hypoaesthesia oral [Unknown]
  - Paraesthesia oral [Recovered/Resolved]
  - Wrong technique in drug usage process [Unknown]
